FAERS Safety Report 22613320 (Version 1)
Quarter: 2023Q2

REPORT INFORMATION
  Report Type: Spontaneous
  Country: US (occurrence: US)
  Receive Date: 20230619
  Receipt Date: 20230619
  Transmission Date: 20230722
  Serious: No
  Sender: FDA-Public Use
  Company Number: US-ALMIRALL, LLC-2023AQU000005

PATIENT

DRUGS (2)
  1. CORDRAN [Suspect]
     Active Substance: FLURANDRENOLIDE
     Indication: Hypertrophic scar
     Dosage: UNK
     Route: 061
     Dates: start: 20220913, end: 20221113
  2. HYDROQUINONE [Suspect]
     Active Substance: HYDROQUINONE
     Indication: Product used for unknown indication
     Dosage: 4 %, QD

REACTIONS (2)
  - Post inflammatory pigmentation change [Recovering/Resolving]
  - Product use in unapproved indication [Unknown]

NARRATIVE: CASE EVENT DATE: 20220913
